FAERS Safety Report 11761869 (Version 1)
Quarter: 2015Q4

REPORT INFORMATION
  Report Type: Spontaneous
  Country: US (occurrence: None)
  Receive Date: 20151120
  Receipt Date: 20151120
  Transmission Date: 20160304
  Serious: No
  Sender: FDA-Public Use
  Company Number: US-MDT-ADR-2015-02203

PATIENT
  Age: 30 Year
  Sex: Male

DRUGS (2)
  1. BACLOFEN INTRATHEAL (2000 MCG/ML) [Suspect]
     Active Substance: BACLOFEN
     Dosage: 1350 MCG/DAY
  2. OXYBUTYNIN [Suspect]
     Active Substance: OXYBUTYNIN
     Dosage: 5 MG, 2X/DAY

REACTIONS (3)
  - Muscle spasticity [None]
  - Hypertonia [None]
  - Dyspnoea [None]
